FAERS Safety Report 9607855 (Version 6)
Quarter: 2014Q2

REPORT INFORMATION
  Report Type: Report from Study
  Country: CA (occurrence: CA)
  Receive Date: 20131009
  Receipt Date: 20140619
  Transmission Date: 20141212
  Serious: Yes (Other)
  Sender: FDA-Public Use
  Company Number: CA-ABBVIE-13P-028-1155734-00

PATIENT
  Sex: Female
  Weight: 22.5 kg

DRUGS (2)
  1. HUMIRA VIAL [Suspect]
     Indication: JUVENILE IDIOPATHIC ARTHRITIS
     Route: 058
     Dates: start: 20130905, end: 20131003
  2. HUMIRA VIAL [Suspect]
     Indication: UVEITIS

REACTIONS (3)
  - Intraocular pressure test [Recovering/Resolving]
  - Cataract [Not Recovered/Not Resolved]
  - Eye inflammation [Recovering/Resolving]
